FAERS Safety Report 9526246 (Version 1)
Quarter: 2013Q1

REPORT INFORMATION
  Report Type: Spontaneous
  Country: US (occurrence: None)
  Receive Date: 20130305
  Receipt Date: 20130305
  Transmission Date: 20140127
  Serious: Yes (Other)
  Sender: FDA-Public Use
  Company Number: 163-21880-12031107

PATIENT
  Age: 63 Year
  Sex: Female
  Weight: 68.04 kg

DRUGS (9)
  1. REVLIMID [Suspect]
     Indication: MYELODYSPLASTIC SYNDROME
     Dosage: 10 MG, 21 IN 21 D, PO
     Route: 048
     Dates: start: 20111121
  2. CIPRO (CIPROFLOXAC-IN) (UNKNOWN) [Concomitant]
  3. CITRACAL + D (CITRACAL + D) (UNKNOWN) [Concomitant]
  4. FISH OIL (FISH OIL) (UNKNOWN) [Concomitant]
  5. LITHIUM (LITHUM) (UNKNOWN) [Concomitant]
  6. LOPERAMIDE (LOPERAMIDE) (UNKNOWN) [Concomitant]
  7. VITAMIN B6 (PYRIDOXINE HYDROCHLORIDE) (UNKNOWN)? [Concomitant]
  8. VITAMIN D3 (COLECALCIFEROL) (UNKNOWN) [Concomitant]
  9. VITAMIN E (TOCOPHEROL) (UNKNOWN) [Concomitant]

REACTIONS (2)
  - Diarrhoea [None]
  - Fatigue [None]
